FAERS Safety Report 9964003 (Version 3)
Quarter: 2014Q1

REPORT INFORMATION
  Report Type: Spontaneous
  Country: US (occurrence: US)
  Receive Date: 20140305
  Receipt Date: 20140320
  Transmission Date: 20141002
  Serious: Yes (Hospitalization, Other)
  Sender: FDA-Public Use
  Company Number: US-UCBSA-110271

PATIENT
  Age: 60 Year
  Sex: Female
  Weight: 72.6 kg

DRUGS (12)
  1. CIMZIA [Suspect]
     Indication: RHEUMATOID ARTHRITIS
     Dates: start: 201306, end: 2013
  2. CIMZIA [Suspect]
     Indication: RHEUMATOID ARTHRITIS
     Dosage: LOT 2: 116725; EXPIRY DATE: ??/MAY/2015
     Route: 058
     Dates: start: 201310, end: 20131203
  3. CIMZIA [Suspect]
     Indication: RHEUMATOID ARTHRITIS
     Dates: start: 20131231, end: 2014
  4. LODINE [Concomitant]
     Indication: RHEUMATOID ARTHRITIS
     Dosage: 2-3 TIMES IN A DAY
     Route: 048
  5. FOLIC ACID [Concomitant]
     Indication: SUPPLEMENTATION THERAPY
     Route: 048
  6. SYNTHROID [Concomitant]
     Indication: HYPOTHYROIDISM
     Route: 048
  7. PREMPRO [Concomitant]
     Dosage: 0.3 MG/1.5 MG
     Route: 048
  8. VITAMIN D [Concomitant]
     Dosage: 50,000 UNITS
     Route: 048
  9. CALCIUM SUPPLEMENT [Concomitant]
     Dosage: 600 MG OF CALCIUM AND 800IU OF D3
     Route: 048
  10. MULTIVITAMIN [Concomitant]
     Route: 048
  11. LORTAB [Concomitant]
     Dosage: 5/500 MG, 3 TIMES IN A DAY AS NEEDED
     Route: 048
  12. PERCOCET [Concomitant]
     Dosage: 5/325MG
     Route: 048

REACTIONS (10)
  - Arthritis [Not Recovered/Not Resolved]
  - Chondropathy [Recovering/Resolving]
  - Pleurisy [Recovered/Resolved]
  - Pyrexia [Recovered/Resolved]
  - Pericarditis [Recovered/Resolved]
  - Pneumonia [Recovered/Resolved]
  - Dyspnoea [Recovered/Resolved]
  - Musculoskeletal pain [Recovered/Resolved]
  - Chest pain [Recovered/Resolved]
  - Productive cough [Not Recovered/Not Resolved]
